FAERS Safety Report 19077285 (Version 1)
Quarter: 2021Q1

REPORT INFORMATION
  Report Type: Spontaneous
  Country: GB (occurrence: GB)
  Receive Date: 20210330
  Receipt Date: 20210330
  Transmission Date: 20210420
  Serious: No
  Sender: FDA-Public Use
  Company Number: None

PATIENT
  Age: 31 Year
  Sex: Female
  Weight: 72.58 kg

DRUGS (1)
  1. NEXPLANON [Suspect]
     Active Substance: ETONOGESTREL

REACTIONS (10)
  - Axillary mass [None]
  - Complication associated with device [None]
  - Headache [None]
  - Dysmenorrhoea [None]
  - Implant site pain [None]
  - Mood swings [None]
  - Weight increased [None]
  - Menorrhagia [None]
  - Acne [None]
  - Depressed mood [None]

NARRATIVE: CASE EVENT DATE: 20210330
